FAERS Safety Report 14072478 (Version 5)
Quarter: 2019Q4

REPORT INFORMATION
  Report Type: Spontaneous
  Country: US (occurrence: US)
  Receive Date: 20171010
  Receipt Date: 20191007
  Transmission Date: 20200122
  Serious: No
  Sender: FDA-Public Use
  Company Number: US-SA-2017SA166206

PATIENT
  Age: 44 Year
  Sex: Female

DRUGS (13)
  1. HYDROXYCHLOROQUINE PHOSPHATE [Concomitant]
     Active Substance: HYDROXYCHLOROQUINE DIPHOSPHATE
  2. PREDNISONE. [Concomitant]
     Active Substance: PREDNISONE
  3. DUPIXENT [Suspect]
     Active Substance: DUPILUMAB
     Indication: PSORIASIS
     Dosage: 300 MG,QOW
     Route: 058
  4. DUPIXENT [Suspect]
     Active Substance: DUPILUMAB
     Indication: DERMATITIS ATOPIC
     Dosage: 300 MG,QOW
     Route: 058
     Dates: start: 20170808
  5. ERGOCALCIFEROL. [Concomitant]
     Active Substance: ERGOCALCIFEROL
  6. PROTOPIC [Concomitant]
     Active Substance: TACROLIMUS
  7. LOSARTAN. [Concomitant]
     Active Substance: LOSARTAN
     Indication: HYPERTENSION
     Dosage: 100 MG,QD
     Route: 065
  8. EUCRISA [Concomitant]
     Active Substance: CRISABOROLE
  9. FISH OIL [Concomitant]
     Active Substance: FISH OIL
  10. DUPIXENT [Suspect]
     Active Substance: DUPILUMAB
     Indication: DERMATITIS ALLERGIC
  11. DUPIXENT [Suspect]
     Active Substance: DUPILUMAB
     Indication: IDIOPATHIC URTICARIA
     Dosage: 300 MG,QOW
     Route: 058
  12. LOSARTAN POTASSIUM. [Concomitant]
     Active Substance: LOSARTAN POTASSIUM
  13. HYDROXYZINE HYDROCHLORIDE. [Concomitant]
     Active Substance: HYDROXYZINE HYDROCHLORIDE

REACTIONS (9)
  - Dermatitis [Recovered/Resolved]
  - Eye pruritus [Recovered/Resolved]
  - Product dose omission [Unknown]
  - Rash [Not Recovered/Not Resolved]
  - Conjunctivitis [Recovered/Resolved]
  - Eye irritation [Recovered/Resolved]
  - Alopecia [Not Recovered/Not Resolved]
  - Product use in unapproved indication [Unknown]
  - Ocular hyperaemia [Recovered/Resolved]
